FAERS Safety Report 18372339 (Version 4)
Quarter: 2021Q2

REPORT INFORMATION
  Report Type: Spontaneous
  Country: US (occurrence: US)
  Receive Date: 20201012
  Receipt Date: 20210429
  Transmission Date: 20210717
  Serious: No
  Sender: FDA-Public Use
  Company Number: US-PFIZER INC-2019482261

PATIENT
  Age: 45 Year
  Sex: Female
  Weight: 97.98 kg

DRUGS (1)
  1. EFFEXOR XR [Suspect]
     Active Substance: VENLAFAXINE HYDROCHLORIDE
     Indication: DEPRESSION
     Dosage: 150 MG, 2X/DAY (ONCE IN MORNING ONCE IN AFTERNOON)
     Route: 048
     Dates: start: 2000

REACTIONS (2)
  - Prescribed overdose [Unknown]
  - Vision blurred [Unknown]

NARRATIVE: CASE EVENT DATE: 2000
